FAERS Safety Report 24145925 (Version 1)
Quarter: 2024Q3

REPORT INFORMATION
  Report Type: Spontaneous
  Country: TN (occurrence: TN)
  Receive Date: 20240729
  Receipt Date: 20240729
  Transmission Date: 20241017
  Serious: Yes (Life-Threatening, Hospitalization, Other)
  Sender: PURACAP
  Company Number: TN-PURACAP-TN-2024EPCLIT00893

PATIENT
  Age: 23 Year
  Sex: Female

DRUGS (2)
  1. AMLODIPINE [Suspect]
     Active Substance: AMLODIPINE BESYLATE
     Indication: Product used for unknown indication
     Route: 048
  2. PERINDOPRIL [Suspect]
     Active Substance: PERINDOPRIL
     Indication: Product used for unknown indication
     Route: 048

REACTIONS (12)
  - Distributive shock [Recovering/Resolving]
  - Metabolic acidosis [Recovering/Resolving]
  - Hyperlactacidaemia [Recovering/Resolving]
  - Multiple organ dysfunction syndrome [Recovering/Resolving]
  - Acute kidney injury [Recovering/Resolving]
  - Hepatic function abnormal [Recovering/Resolving]
  - Pulmonary oedema [Recovering/Resolving]
  - Headache [Recovering/Resolving]
  - Dizziness [Recovering/Resolving]
  - Peripheral coldness [Recovering/Resolving]
  - Toxicity to various agents [Recovering/Resolving]
  - Overdose [Unknown]
